FAERS Safety Report 7822697 (Version 8)
Quarter: 2013Q3

REPORT INFORMATION
  Report Type: Report from Study
  Country: SE (occurrence: SE)
  Receive Date: 20110223
  Receipt Date: 20130719
  Transmission Date: 20140515
  Serious: Yes (Hospitalization, Other)
  Sender: FDA-Public Use
  Company Number: US-BRISTOL-MYERS SQUIBB COMPANY-15556822

PATIENT
  Age: 72 Year
  Sex: Female

DRUGS (9)
  1. METFORMIN HCL [Suspect]
     Indication: DIABETES MELLITUS
  2. INSULIN HUMAN [Suspect]
     Indication: DIABETES MELLITUS
     Dosage: BEFORE RANDAMIZATION-28NOV10,29NOV10-14JUL11(22IU) 15JUL11-22APR12 26IU;23APR12-ONG 28IU
  3. PLACEBO [Suspect]
     Indication: TYPE 2 DIABETES MELLITUS
     Dates: start: 20101026
  4. VAGIFEM [Concomitant]
     Indication: BLOOD OESTROGEN DECREASED
     Route: 067
  5. TIMOLOL MALEATE [Concomitant]
     Indication: GLAUCOMA
     Dosage: TIMOSAN
     Route: 047
  6. FESOTERODINE [Concomitant]
     Indication: URINARY INCONTINENCE
     Route: 048
  7. SPIRIVA [Concomitant]
     Route: 055
  8. ALVEDON [Concomitant]
     Indication: PAIN
     Route: 048
  9. ASPIRIN [Concomitant]
     Dosage: 1DF:}100MG

REACTIONS (2)
  - Gastroenteritis cryptosporidial [Recovered/Resolved]
  - Femoral artery occlusion [Recovered/Resolved]
